FAERS Safety Report 5043052-0 (Version None)
Quarter: 2006Q3

REPORT INFORMATION
  Report Type: 
  Country: None (occurrence: None)
  Receive Date: 20060703
  Receipt Date: 20060703
  Transmission Date: 20061208
  Serious: No
  Sender: FDA-Public Use
  Company Number: None

PATIENT
  Sex: Female
  Weight: 58.9676 kg

DRUGS (2)
  1. AMITRIPTYLINE HCL [Suspect]
     Indication: DEPRESSION
     Dosage: 10 MG QHS PO
     Route: 048
     Dates: start: 20060624
  2. AMITRIPTYLINE HCL [Suspect]
     Indication: SLEEP DISORDER
     Dosage: 10 MG QHS PO
     Route: 048
     Dates: start: 20060624

REACTIONS (5)
  - ADVERSE EVENT [None]
  - DYSPNOEA [None]
  - REACTION TO AZO-DYES [None]
  - THERAPEUTIC RESPONSE UNEXPECTED WITH DRUG SUBSTITUTION [None]
  - URTICARIA [None]
